FAERS Safety Report 14586917 (Version 2)
Quarter: 2018Q1

REPORT INFORMATION
  Report Type: Spontaneous
  Country: US (occurrence: US)
  Receive Date: 20180301
  Receipt Date: 20180309
  Transmission Date: 20180509
  Serious: No
  Sender: FDA-Public Use
  Company Number: US-009507513-1802USA013762

PATIENT
  Sex: Female

DRUGS (1)
  1. CLARINEX-D-24 [Suspect]
     Active Substance: DESLORATADINE\PSEUDOEPHEDRINE SULFATE
     Indication: ASTHMA
     Dosage: ONE TABLET AS NEEDED
     Route: 048
     Dates: start: 2008

REACTIONS (3)
  - Product use issue [Unknown]
  - Product use in unapproved indication [Unknown]
  - No adverse event [Unknown]

NARRATIVE: CASE EVENT DATE: 2008
